FAERS Safety Report 21546717 (Version 6)
Quarter: 2023Q2

REPORT INFORMATION
  Report Type: Report from Study
  Country: US (occurrence: US)
  Receive Date: 20221103
  Receipt Date: 20230506
  Transmission Date: 20230722
  Serious: Yes (Death)
  Sender: FDA-Public Use
  Company Number: US-ABBVIE-4182982

PATIENT
  Age: 73 Year
  Sex: Female

DRUGS (12)
  1. VENCLEXTA [Suspect]
     Active Substance: VENETOCLAX
     Indication: Acute myeloid leukaemia
     Dosage: WHILE AWAKE?FORM STRENGTH :100 MILLIGRAM?LAST ADMIN DATE- 2022
     Route: 048
     Dates: start: 20221104
  2. VENCLEXTA [Suspect]
     Active Substance: VENETOCLAX
     Indication: Acute myeloid leukaemia
     Dosage: 2 PILLS DAILY FOR 21DAYS EVERY 28 DAYS?STRENGTH: 100 MILLIGRAM?FIRST ADMIN DATE- 2022
     Route: 048
  3. VENCLEXTA [Suspect]
     Active Substance: VENETOCLAX
     Indication: Acute myeloid leukaemia
     Dosage: 4 PILLS DAILY FOR 21 DAYS EVERY 28 DAYS
     Route: 048
  4. VALTREX [Concomitant]
     Active Substance: VALACYCLOVIR HYDROCHLORIDE
     Indication: Product used for unknown indication
     Dosage: FORM STRENGTH: 500 MILLIGRAM
     Route: 048
  5. PROGESTERONE [Concomitant]
     Active Substance: PROGESTERONE
     Indication: Product used for unknown indication
     Dosage: STRENGTH 50MG/ML OIL
     Route: 030
  6. LEVOTHYROXINE SODIUM [Concomitant]
     Active Substance: LEVOTHYROXINE SODIUM
     Indication: Product used for unknown indication
     Dosage: ROTATES 50MCG AND 75 MCG?STRENGTH: 50 MICROGRAM
     Route: 048
  7. ONDANSETRON [Concomitant]
     Active Substance: ONDANSETRON
     Indication: Product used for unknown indication
     Dosage: FORM STRENGTH-8MG ORAL SOLUBLE FILM
     Route: 048
  8. LEVOFLOXACIN [Concomitant]
     Active Substance: LEVOFLOXACIN
     Indication: Product used for unknown indication
     Dosage: STRENGTH: 250 MILLIGRAM
     Route: 048
  9. ESTRADIOL [Concomitant]
     Active Substance: ESTRADIOL
     Indication: Product used for unknown indication
     Dosage: STRENGTH: 0.5 MILLIGRAM
     Route: 048
  10. POTASSIUM CHLORIDE [Concomitant]
     Active Substance: POTASSIUM CHLORIDE
     Indication: Product used for unknown indication
     Dosage: 10MEQ
     Route: 048
  11. POSACONAZOLE [Concomitant]
     Active Substance: POSACONAZOLE
     Indication: Product used for unknown indication
     Dosage: TIME INTERVAL: 0.33333333 DAYS: FORM STRENGTH: 100MG
     Route: 048
  12. VIDAZA [Concomitant]
     Active Substance: AZACITIDINE
     Indication: Product used for unknown indication
     Dosage: 75MG/M2 D1-D7 Q 28 DAYS TMG V18.0 STATUS-ONGOING CYCLES GIVEN/PLANNED -1/12
     Route: 042
     Dates: start: 20221114

REACTIONS (2)
  - Death [Fatal]
  - Product use issue [Unknown]

NARRATIVE: CASE EVENT DATE: 20230427
